FAERS Safety Report 19243846 (Version 3)
Quarter: 2023Q2

REPORT INFORMATION
  Report Type: Report from Study
  Country: CO (occurrence: CO)
  Receive Date: 20210511
  Receipt Date: 20230404
  Transmission Date: 20230721
  Serious: Yes (Other)
  Sender: FDA-Public Use
  Company Number: CO-ABBVIE-21K-036-3899026-00

PATIENT
  Age: 17 Year
  Sex: Female
  Weight: 52 kg

DRUGS (3)
  1. HUMIRA [Suspect]
     Active Substance: ADALIMUMAB
     Indication: Juvenile idiopathic arthritis
     Route: 058
  2. HUMIRA [Suspect]
     Active Substance: ADALIMUMAB
  3. BRIMONIDINE TARTRATE\TIMOLOL MALEATE [Concomitant]
     Active Substance: BRIMONIDINE TARTRATE\TIMOLOL MALEATE
     Indication: Ocular discomfort
     Dosage: DAILY
     Route: 047

REACTIONS (19)
  - Glaucoma [Recovering/Resolving]
  - Arthralgia [Recovering/Resolving]
  - Uveitis [Recovered/Resolved]
  - Joint swelling [Recovered/Resolved]
  - Osteitis [Not Recovered/Not Resolved]
  - Vision blurred [Recovering/Resolving]
  - Feeling abnormal [Unknown]
  - Neck pain [Recovered/Resolved]
  - Torticollis [Not Recovered/Not Resolved]
  - Juvenile idiopathic arthritis [Recovering/Resolving]
  - Drug ineffective [Recovering/Resolving]
  - Arthralgia [Recovered/Resolved]
  - Arthralgia [Recovered/Resolved]
  - Arthralgia [Recovered/Resolved]
  - Eye haemorrhage [Recovering/Resolving]
  - Joint swelling [Recovering/Resolving]
  - Uveitis [Not Recovered/Not Resolved]
  - Lenticular opacities [Not Recovered/Not Resolved]
  - Arthritis [Unknown]

NARRATIVE: CASE EVENT DATE: 20210401
